FAERS Safety Report 25613669 (Version 1)
Quarter: 2025Q3

REPORT INFORMATION
  Report Type: Spontaneous
  Country: JP (occurrence: JP)
  Receive Date: 20250728
  Receipt Date: 20250728
  Transmission Date: 20251020
  Serious: Yes (Other)
  Sender: MERCK SHARP & DOHME LLC
  Company Number: JP-009507513-2313261

PATIENT
  Age: 78 Year
  Sex: Female

DRUGS (2)
  1. KEYTRUDA [Suspect]
     Active Substance: PEMBROLIZUMAB
     Indication: Bladder cancer
  2. ENFORTUMAB VEDOTIN [Suspect]
     Active Substance: ENFORTUMAB VEDOTIN
     Indication: Bladder cancer

REACTIONS (6)
  - Depressed level of consciousness [Recovering/Resolving]
  - Erythema [Unknown]
  - Skin erosion [Recovering/Resolving]
  - Odynophagia [Unknown]
  - Metabolic acidosis [Unknown]
  - Oropharyngeal pain [Recovering/Resolving]
